FAERS Safety Report 9837364 (Version 2)
Quarter: 2014Q1

REPORT INFORMATION
  Report Type: Spontaneous
  Country: US (occurrence: US)
  Receive Date: 20140123
  Receipt Date: 20140123
  Transmission Date: 20141002
  Serious: No
  Sender: FDA-Public Use
  Company Number: US-PFIZER INC-2013083942

PATIENT
  Age: 47 Year
  Sex: Female

DRUGS (12)
  1. ENBREL [Suspect]
     Dosage: UNK
  2. MORPHINE SULFATE [Suspect]
     Dosage: UNK
  3. NORTRIPTYLINE [Concomitant]
     Dosage: UNK
  4. FOSAMAX [Concomitant]
     Dosage: UNK
  5. VIIBRYD [Concomitant]
     Dosage: UNK
  6. OMEPRAZOLE [Concomitant]
     Dosage: UNK
  7. DICLOFENAC SODIUM [Concomitant]
     Dosage: UNK
  8. LAMOTRIGINE [Concomitant]
     Dosage: UNK
  9. CLONAZEPAM [Concomitant]
     Dosage: UNK
  10. TRAMADOL [Concomitant]
     Dosage: UNK
  11. LYRICA [Concomitant]
     Dosage: UNK
  12. OXYCONTIN [Concomitant]
     Dosage: UNK

REACTIONS (1)
  - Drug hypersensitivity [Unknown]
